FAERS Safety Report 8050881-8 (Version None)
Quarter: 2012Q1

REPORT INFORMATION
  Report Type: 
  Country: None (occurrence: None)
  Receive Date: 20120117
  Receipt Date: 20120109
  Transmission Date: 20120608
  Serious: Yes (Other)
  Sender: FDA-Public Use
  Company Number: PHHY2012AR002473

PATIENT
  Sex: Female

DRUGS (2)
  1. VENOSMIL [Concomitant]
     Dosage: UNK
  2. DIOVAN HCT [Suspect]
     Dosage: 160MG OF VALS AND UNSPECIFIED MG OF HYDRO DAILY
     Dates: start: 20090101

REACTIONS (1)
  - THROMBOSIS [None]
